FAERS Safety Report 16963086 (Version 2)
Quarter: 2019Q4

REPORT INFORMATION
  Report Type: Report from Study
  Country: US (occurrence: US)
  Receive Date: 20191025
  Receipt Date: 20191122
  Transmission Date: 20200122
  Serious: Yes (Death, Hospitalization, Other)
  Sender: FDA-Public Use
  Company Number: US-BAYER-2019-045933

PATIENT
  Age: 91 Year
  Sex: Male
  Weight: 54.6 kg

DRUGS (24)
  1. ASPIRIN [ACETYLSALICYLIC ACID] [Concomitant]
     Active Substance: ASPIRIN
     Dosage: TAKE 81 MG AT BEDTIME
     Route: 048
  2. VITAMIN D3 [Concomitant]
     Active Substance: CHOLECALCIFEROL
     Dosage: UNK
  3. KEPPRA [Concomitant]
     Active Substance: LEVETIRACETAM
     Indication: PROPHYLAXIS
     Dosage: 500 MG, QD
     Route: 048
     Dates: start: 20190326, end: 20190925
  4. ELIQUIS [Concomitant]
     Active Substance: APIXABAN
     Indication: ANTICOAGULANT THERAPY
     Dosage: 2.5 MG, BID
     Route: 048
     Dates: start: 20180410, end: 20190925
  5. PRESERVISION AREDS [Concomitant]
     Active Substance: MINERALS\VITAMINS
     Dosage: 2 DF, BID
  6. LACTOBAC [BIFIDOBACTERIUM BIFIDUM;LACTOBACILLUS RHAMNOSUS] [Concomitant]
     Dosage: TAKE 1 CAPSULE BY MOUTH 2 (TWO) TIMES A DAY.
     Route: 048
  7. ELIQUIS [Concomitant]
     Active Substance: APIXABAN
     Indication: ATRIAL FIBRILLATION
  8. LEVETIRACETAM. [Concomitant]
     Active Substance: LEVETIRACETAM
     Dosage: DAILY DOSE 500 MG
  9. OMEGA 3 [DOCOSAHEXAENOIC ACID;EICOSAPENTAENOIC ACID] [Concomitant]
     Active Substance: DOCONEXENT\ICOSAPENT
     Dosage: TAKE 1 CAPSULE BY MOUTH 2 (TWO) TIMES A DAY
     Route: 048
  10. STIVARGA [Suspect]
     Active Substance: REGORAFENIB
     Indication: METASTASES TO LUNG
     Dosage: 80 MG, QD 21/28 DAYS CYCLE
     Dates: start: 2019, end: 20190914
  11. DILTIAZEM HCL [Concomitant]
     Active Substance: DILTIAZEM HYDROCHLORIDE
     Dosage: 1 DF, QD
     Route: 048
  12. DIGOXIN. [Concomitant]
     Active Substance: DIGOXIN
     Indication: ATRIAL FIBRILLATION
     Dosage: 125 MCG/24HR, QD MORNING
     Route: 048
     Dates: start: 20160331, end: 20190425
  13. LATANOPROST. [Concomitant]
     Active Substance: LATANOPROST
     Dosage: 1 DROP TO EACH AFFETCTED EYE H.S
     Route: 047
  14. SIMBRINZA [Concomitant]
     Active Substance: BRIMONIDINE TARTRATE\BRINZOLAMIDE
     Dosage: 1 DROP TO EACH AFFECTED EYE BID
     Route: 047
  15. ATIVAN [Concomitant]
     Active Substance: LORAZEPAM
     Dosage: UNK
  16. TYLENOL [Concomitant]
     Active Substance: ACETAMINOPHEN
     Indication: PAIN
     Dosage: 1 MG, QD AS NEEDED
     Route: 048
  17. LEVETIRACETAM. [Concomitant]
     Active Substance: LEVETIRACETAM
     Dosage: 500 MG, BID
     Route: 048
     Dates: start: 20190326
  18. DILTIAZEM. [Concomitant]
     Active Substance: DILTIAZEM
     Indication: ATRIAL FIBRILLATION
     Dosage: 240 MG, QD
     Route: 048
     Dates: start: 20180405, end: 20190925
  19. STIVARGA [Suspect]
     Active Substance: REGORAFENIB
     Indication: SKIN ANGIOSARCOMA
     Dosage: 160 MG DAILY
     Route: 048
     Dates: start: 20190205, end: 20190225
  20. COQ [Concomitant]
     Dosage: 1 DF, QD
  21. MORPHINE [Concomitant]
     Active Substance: MORPHINE
  22. CHOLECALCIFEROL [Concomitant]
     Active Substance: CHOLECALCIFEROL
     Dosage: TAKE 400 UNITS EVERY MORNING.
     Route: 048
  23. MULTIVITAMINS [VITAMINS NOS] [Concomitant]
     Active Substance: VITAMINS
     Dosage: TAKE 1 TABLET EVERY MORNING
     Route: 048
  24. XALATAN [Concomitant]
     Active Substance: LATANOPROST
     Indication: CATARACT
     Dosage: UNK
     Dates: start: 20160331, end: 20190925

REACTIONS (35)
  - Acute kidney injury [None]
  - Sarcoma [None]
  - Neutropenia [None]
  - Carotid artery stenosis [None]
  - Atrial fibrillation [None]
  - Hypertension [None]
  - Product use in unapproved indication [None]
  - Pleural effusion [Not Recovered/Not Resolved]
  - Pneumonia aspiration [None]
  - Anuria [None]
  - Hyperkalaemia [Not Recovered/Not Resolved]
  - Hyperlipidaemia [None]
  - Cough [None]
  - Dyspnoea exertional [None]
  - Chronic kidney disease [None]
  - Asthenia [Not Recovered/Not Resolved]
  - Tachycardia [None]
  - Fatigue [None]
  - Acute respiratory failure [None]
  - Ascites [None]
  - Blood pressure decreased [None]
  - Hepatic failure [None]
  - Leukocytosis [None]
  - Urine output decreased [None]
  - Lymphopenia [None]
  - Off label use [None]
  - Skin angiosarcoma [Fatal]
  - Blood creatinine increased [Not Recovered/Not Resolved]
  - Tachypnoea [None]
  - Metabolic acidosis [Not Recovered/Not Resolved]
  - Dizziness [Recovered/Resolved]
  - Pulmonary embolism [None]
  - Hepatic cirrhosis [None]
  - Diarrhoea [Not Recovered/Not Resolved]
  - Macrocytosis [None]

NARRATIVE: CASE EVENT DATE: 20190303
